FAERS Safety Report 8157405 (Version 2)
Quarter: 2013Q4

REPORT INFORMATION
  Report Type: Spontaneous
  Country: NL (occurrence: None)
  Receive Date: 20110914
  Receipt Date: 20131002
  Transmission Date: 20140711
  Serious: Yes (Other)
  Sender: FDA-Public Use
  Company Number: 2011NL0255

PATIENT
  Age: 7 Day
  Sex: Female

DRUGS (1)
  1. NITISINONE [Suspect]
     Indication: TYROSINAEMIA
     Dosage: 1 MG/KG (1 MG/KG, 1 IN 1 D)

REACTIONS (6)
  - Amino acid level increased [None]
  - Eczema [None]
  - Failure to thrive [None]
  - Myoclonus [None]
  - Psychomotor skills impaired [None]
  - Amino acid level decreased [None]
